FAERS Safety Report 22655411 (Version 1)
Quarter: 2023Q2

REPORT INFORMATION
  Report Type: Spontaneous
  Country: GB (occurrence: None)
  Receive Date: 20230629
  Receipt Date: 20230629
  Transmission Date: 20230722
  Serious: Yes (Other)
  Sender: FDA-Public Use
  Company Number: 2023A149456

PATIENT
  Sex: Male

DRUGS (3)
  1. OSIMERTINIB [Suspect]
     Active Substance: OSIMERTINIB
     Indication: Lung adenocarcinoma
     Route: 048
  2. ADCAL [Concomitant]
  3. LACOSAMIDE [Concomitant]
     Active Substance: LACOSAMIDE

REACTIONS (1)
  - Metastases to central nervous system [Unknown]
